FAERS Safety Report 13093015 (Version 1)
Quarter: 2017Q1

REPORT INFORMATION
  Report Type: Spontaneous
  Country: AU (occurrence: AU)
  Receive Date: 20170106
  Receipt Date: 20170106
  Transmission Date: 20170428
  Serious: Yes (Other)
  Sender: FDA-Public Use
  Company Number: AU-JNJFOC-20160715541

PATIENT
  Age: 74 Year
  Sex: Female

DRUGS (2)
  1. XARELTO [Suspect]
     Active Substance: RIVAROXABAN
     Indication: ATRIAL FIBRILLATION
     Route: 048
     Dates: start: 20160412, end: 20160728
  2. XARELTO [Suspect]
     Active Substance: RIVAROXABAN
     Indication: CEREBROVASCULAR ACCIDENT PROPHYLAXIS
     Route: 048
     Dates: start: 20160412, end: 20160728

REACTIONS (8)
  - Cellulitis [Recovered/Resolved]
  - Factor IX deficiency [Unknown]
  - Erythema [Unknown]
  - Rash [Unknown]
  - Oedema peripheral [Unknown]
  - Intentional product misuse [Unknown]
  - Haemorrhage subcutaneous [Unknown]
  - Pain [Unknown]

NARRATIVE: CASE EVENT DATE: 20160719
